FAERS Safety Report 7815209-4 (Version None)
Quarter: 2011Q4

REPORT INFORMATION
  Report Type: 
  Country: None (occurrence: None)
  Receive Date: 20111014
  Receipt Date: 20111005
  Transmission Date: 20120403
  Serious: Yes (Hospitalization)
  Sender: FDA-Public Use
  Company Number: JP-JNJFOC-20110911366

PATIENT
  Age: 70 Year
  Sex: Female

DRUGS (9)
  1. GASCON [Concomitant]
     Route: 048
  2. CEREDIST [Concomitant]
     Route: 048
  3. SITAFLOXACIN [Suspect]
     Indication: PRODUCT USED FOR UNKNOWN INDICATION
     Route: 065
  4. POLAPREZINC [Concomitant]
     Route: 048
  5. AVELOX [Suspect]
     Indication: PRODUCT USED FOR UNKNOWN INDICATION
     Route: 048
  6. ITRACONAZOLE [Suspect]
     Indication: FUNGAL INFECTION
     Route: 048
     Dates: start: 20110924
  7. LANSOPRAZOLE [Suspect]
     Indication: PRODUCT USED FOR UNKNOWN INDICATION
     Route: 048
  8. SULTAMICILLIN TOSILATE [Suspect]
     Indication: PRODUCT USED FOR UNKNOWN INDICATION
     Route: 065
  9. FUNGUARD [Suspect]
     Indication: FUNGAL INFECTION
     Route: 042
     Dates: start: 20110924

REACTIONS (3)
  - PYREXIA [None]
  - ANTIBIOTIC RESISTANT STAPHYLOCOCCUS TEST [None]
  - RASH [None]
